FAERS Safety Report 4973614-8 (Version None)
Quarter: 2006Q2

REPORT INFORMATION
  Report Type: 
  Country: None (occurrence: None)
  Receive Date: 20060413
  Receipt Date: 20060413
  Transmission Date: 20061013
  Serious: Yes (Other)
  Sender: FDA-Public Use
  Company Number: None

PATIENT
  Age: 53 Year
  Sex: Male
  Weight: 78 kg

DRUGS (14)
  1. MIDAZOLAM HCL [Suspect]
  2. MEPERIDINE [Suspect]
     Indication: SEDATION
     Dosage: INTRAVENOUS
     Route: 042
     Dates: start: 20060315, end: 20060315
  3. SERTRALINE HCL [Concomitant]
  4. FOLIC ACID [Concomitant]
  5. OMEPRAZOLE [Concomitant]
  6. THIAMINE HCL [Concomitant]
  7. BISACODYL TAB [Concomitant]
  8. ELECTROLYTES/PEG-3350 PWDR [Concomitant]
  9. PROPRANOLOL TAB [Concomitant]
  10. LISINOPRIL [Concomitant]
  11. ACETAMINOPHEN TAB [Concomitant]
  12. ALOH/MGOH/SIMETHICONE SUSP [Concomitant]
  13. MULTIVITAMINS TAB [Concomitant]
  14. FERROUS SULFATE TAB [Concomitant]

REACTIONS (1)
  - ERYTHEMA [None]
